FAERS Safety Report 9948767 (Version 2)
Quarter: 2015Q3

REPORT INFORMATION
  Report Type: Report from Study
  Country: US (occurrence: US)
  Receive Date: 20140304
  Receipt Date: 20150716
  Transmission Date: 20151125
  Serious: Yes (Other)
  Sender: FDA-Public Use
  Company Number: US-ROCHE-1345089

PATIENT
  Age: 45 Year
  Sex: Female

DRUGS (10)
  1. METFORMIN [Concomitant]
     Active Substance: METFORMIN HYDROCHLORIDE
     Route: 065
  2. VIGAMOX [Concomitant]
     Active Substance: MOXIFLOXACIN HYDROCHLORIDE
  3. LISINOPRIL. [Concomitant]
     Active Substance: LISINOPRIL
     Route: 065
  4. LUCENTIS [Suspect]
     Active Substance: RANIBIZUMAB
     Indication: DIABETIC RETINAL OEDEMA
     Route: 050
  5. AVASTIN [Suspect]
     Active Substance: BEVACIZUMAB
     Indication: DIABETIC RETINOPATHY
     Route: 065
  6. ALBUTEROL. [Concomitant]
     Active Substance: ALBUTEROL
  7. LIDOCAINE GEL [Concomitant]
  8. LANTUS [Concomitant]
     Active Substance: INSULIN GLARGINE
     Route: 058
  9. AVASTIN [Suspect]
     Active Substance: BEVACIZUMAB
     Indication: MACULAR OEDEMA
  10. LEVOTHYROXIN [Concomitant]
     Active Substance: LEVOTHYROXINE
     Route: 065

REACTIONS (9)
  - Therapeutic response decreased [Unknown]
  - Lacrimation increased [Unknown]
  - Dry eye [Unknown]
  - Visual impairment [Unknown]
  - Vision blurred [Unknown]
  - Eyelid margin crusting [Unknown]
  - Cataract [Unknown]
  - Vision blurred [Unknown]
  - Off label use [Unknown]

NARRATIVE: CASE EVENT DATE: 20110711
